FAERS Safety Report 21860517 (Version 2)
Quarter: 2023Q1

REPORT INFORMATION
  Report Type: Spontaneous
  Country: US (occurrence: US)
  Receive Date: 20230113
  Receipt Date: 20230203
  Transmission Date: 20230418
  Serious: No
  Sender: FDA-Public Use
  Company Number: US-BRISTOL-MYERS SQUIBB COMPANY-2023-005302

PATIENT
  Age: 62 Year
  Sex: Male

DRUGS (2)
  1. SOTYKTU [Suspect]
     Active Substance: DEUCRAVACITINIB
     Indication: Psoriasis
     Dosage: DOSE : 6MG;     FREQ : DAILY
     Route: 048
     Dates: start: 202212
  2. SOTYKTU [Suspect]
     Active Substance: DEUCRAVACITINIB
     Dosage: DOSE : 6MG;     FREQ : DAILY
     Route: 048
     Dates: start: 20221117

REACTIONS (3)
  - Chest discomfort [Unknown]
  - Eye swelling [Unknown]
  - Hypersensitivity [Unknown]

NARRATIVE: CASE EVENT DATE: 20230101
